FAERS Safety Report 9742748 (Version 2)
Quarter: 2013Q4

REPORT INFORMATION
  Report Type: Spontaneous
  Country: US (occurrence: US)
  Receive Date: 20131210
  Receipt Date: 20131210
  Transmission Date: 20140711
  Serious: No
  Sender: FDA-Public Use
  Company Number: US-GILEAD-2009-0025942

PATIENT
  Age: 50 Year
  Sex: Female

DRUGS (5)
  1. LETAIRIS [Suspect]
     Indication: PULMONARY ARTERIAL HYPERTENSION
     Route: 048
     Dates: start: 20090711
  2. FORTEO [Concomitant]
  3. NEXIUM [Concomitant]
  4. PROCARDIA XL [Concomitant]
  5. TRAMADOL/APAP [Concomitant]

REACTIONS (1)
  - Anaemia [Recovered/Resolved]
